FAERS Safety Report 9357887 (Version 1)
Quarter: 2013Q2

REPORT INFORMATION
  Report Type: Spontaneous
  Country: US (occurrence: US)
  Receive Date: 20130620
  Receipt Date: 20130620
  Transmission Date: 20140414
  Serious: No
  Sender: FDA-Public Use
  Company Number: US-009507513-1306USA008791

PATIENT
  Sex: 0

DRUGS (2)
  1. SINGULAIR [Suspect]
     Indication: ASTHMA
     Dosage: 5 MG UNK,
     Route: 048
  2. SINGULAIR [Suspect]
     Dosage: 10 MG, UNK

REACTIONS (1)
  - Drug ineffective [Unknown]
